FAERS Safety Report 4714199-0 (Version None)
Quarter: 2005Q2

REPORT INFORMATION
  Report Type: 
  Country: None (occurrence: None)
  Receive Date: 20050630
  Receipt Date: 20050218
  Transmission Date: 20051028
  Serious: Yes (Hospitalization)
  Sender: FDA-Public Use
  Company Number: 396552

PATIENT
  Sex: Female

DRUGS (2)
  1. KLONOPIN [Suspect]
     Indication: DRUG USE FOR UNKNOWN INDICATION
  2. XANAX [Concomitant]

REACTIONS (10)
  - ADVERSE EVENT [None]
  - ANXIETY [None]
  - BONE PAIN [None]
  - CONVULSION [None]
  - DRUG WITHDRAWAL SYNDROME [None]
  - FEAR [None]
  - JUDGEMENT IMPAIRED [None]
  - SUICIDAL IDEATION [None]
  - TREMOR [None]
  - VISUAL DISTURBANCE [None]
